FAERS Safety Report 17859900 (Version 1)
Quarter: 2020Q2

REPORT INFORMATION
  Report Type: Spontaneous
  Country: US (occurrence: US)
  Receive Date: 20200604
  Receipt Date: 20200604
  Transmission Date: 20200714
  Serious: Yes (Other)
  Sender: FDA-Public Use
  Company Number: None

PATIENT
  Age: 55 Year
  Sex: Female
  Weight: 57.6 kg

DRUGS (3)
  1. OMEGA [Concomitant]
  2. LEVOTHYROXINE. [Suspect]
     Active Substance: LEVOTHYROXINE
     Indication: HYPOTHYROIDISM
     Dosage: ?          QUANTITY:1 TABLET(S);?
     Route: 048
     Dates: start: 20200517, end: 20200602
  3. MULTIVITAMIN SUPPLEMENTS [Concomitant]

REACTIONS (3)
  - Pain [None]
  - Fatigue [None]
  - Product odour abnormal [None]

NARRATIVE: CASE EVENT DATE: 20200531
